FAERS Safety Report 4274091-5 (Version None)
Quarter: 2004Q1

REPORT INFORMATION
  Report Type: 
  Country: None (occurrence: None)
  Receive Date: 20040120
  Receipt Date: 20040119
  Transmission Date: 20041129
  Serious: Yes (Hospitalization)
  Sender: FDA-Public Use
  Company Number: FR-GLAXOSMITHKLINE-A0493820A

PATIENT
  Age: 67 Year
  Sex: Male

DRUGS (4)
  1. NAVELBINE [Suspect]
     Indication: BRONCHIAL CARCINOMA
     Dosage: 10MGML PER DAY
     Route: 042
     Dates: start: 20000615, end: 20010615
  2. CISPLATINE DAKOTA PHARM [Suspect]
     Indication: BRONCHIAL CARCINOMA
     Dosage: .5MGML PER DAY
     Route: 042
     Dates: start: 20000615, end: 20010615
  3. TAXOTERE [Suspect]
     Indication: BRONCHIAL CARCINOMA
     Dosage: 80MG PER DAY
     Route: 042
     Dates: start: 20010615
  4. GEMZAR [Suspect]
     Indication: BRONCHIAL CARCINOMA
     Route: 042
     Dates: start: 20010615

REACTIONS (1)
  - MYELODYSPLASTIC SYNDROME [None]
